FAERS Safety Report 10033141 (Version 1)
Quarter: 2014Q1

REPORT INFORMATION
  Report Type: Spontaneous
  Country: US (occurrence: US)
  Receive Date: 20140324
  Receipt Date: 20140324
  Transmission Date: 20141002
  Serious: Yes (Hospitalization)
  Sender: FDA-Public Use
  Company Number: US-ACTAVIS-2014-05192

PATIENT
  Sex: Male
  Weight: 92 kg

DRUGS (3)
  1. NORCO (UNKNOWN) (WATSON LABORATORIES) [Suspect]
     Indication: PAIN
     Dosage: UNK, UNKNOWN
     Route: 065
  2. REMODULIN [Suspect]
     Indication: PULMONARY ARTERIAL HYPERTENSION
     Dosage: 67.68 UG/KG (0.047 UG/KG,1 IN 1 MIN)
     Route: 058
     Dates: start: 20130123
  3. WARFARIN [Concomitant]
     Indication: PRODUCT USED FOR UNKNOWN INDICATION

REACTIONS (3)
  - Arthralgia [Recovering/Resolving]
  - Drug dose omission [Recovering/Resolving]
  - Confusional state [Recovering/Resolving]
